FAERS Safety Report 8048616-8 (Version None)
Quarter: 2012Q1

REPORT INFORMATION
  Report Type: 
  Country: None (occurrence: None)
  Receive Date: 20120117
  Receipt Date: 20120114
  Transmission Date: 20120608
  Serious: Yes (Other)
  Sender: FDA-Public Use
  Company Number: US-PFIZER INC-2012011082

PATIENT
  Sex: Female
  Weight: 63.039 kg

DRUGS (8)
  1. LIPITOR [Suspect]
     Dosage: 20 MG, DAILY
     Route: 048
     Dates: start: 20110101
  2. LIPITOR [Suspect]
     Dosage: 20 MG, DAILY
     Route: 048
     Dates: start: 20120101
  3. ATORVASTATIN CALCIUM [Suspect]
     Indication: BLOOD CHOLESTEROL ABNORMAL
     Dosage: UNK
  4. IBUPROFEN [Suspect]
     Indication: MENISCUS LESION
     Dosage: UNK, DAILY
     Dates: start: 20110701, end: 20110701
  5. DIOVAN HCT [Suspect]
     Indication: BLOOD PRESSURE ABNORMAL
     Dosage: 80/12.5 MG, DAILY
     Dates: end: 20120113
  6. LIPITOR [Suspect]
     Indication: BLOOD CHOLESTEROL ABNORMAL
     Dosage: 20 MG, DAILY
     Route: 048
     Dates: end: 20110701
  7. ASPIRIN [Suspect]
     Indication: CARDIAC DISORDER
     Dosage: 81 MG, DAILY
     Dates: end: 20110701
  8. ASPIRIN [Suspect]
     Dosage: 81 MG, DAILY
     Dates: start: 20110101, end: 20120101

REACTIONS (2)
  - RASH GENERALISED [None]
  - MENISCUS LESION [None]
